FAERS Safety Report 20450979 (Version 2)
Quarter: 2022Q2

REPORT INFORMATION
  Report Type: Spontaneous
  Country: US (occurrence: US)
  Receive Date: 20220209
  Receipt Date: 20220413
  Transmission Date: 20220720
  Serious: Yes (Other)
  Sender: FDA-Public Use
  Company Number: US-TAKEDA-2022TUS007966

PATIENT
  Sex: Female
  Weight: 74 kg

DRUGS (3)
  1. LIALDA [Suspect]
     Active Substance: MESALAMINE
     Indication: Colitis
     Dosage: 1.2 GRAM, QD
     Route: 065
  2. LIALDA [Suspect]
     Active Substance: MESALAMINE
     Dosage: 1.2 GRAM, QD
     Route: 065
     Dates: start: 20211227, end: 20220101
  3. MAVYRET [Concomitant]
     Active Substance: GLECAPREVIR\PIBRENTASVIR
     Indication: Hepatitis C
     Dosage: UNK

REACTIONS (4)
  - Hepatic failure [Unknown]
  - Chromaturia [Recovered/Resolved]
  - Colitis [Recovered/Resolved]
  - Inability to afford medication [Unknown]
